FAERS Safety Report 26174868 (Version 1)
Quarter: 2025Q4

REPORT INFORMATION
  Report Type: Spontaneous
  Country: EU (occurrence: EU)
  Receive Date: 20251218
  Receipt Date: 20251218
  Transmission Date: 20260118
  Serious: Yes (Life-Threatening, Hospitalization)
  Sender: BRACCO
  Company Number: None

PATIENT
  Age: 57 Year
  Sex: Male
  Weight: 100 kg

DRUGS (2)
  1. PROHANCE [Suspect]
     Active Substance: GADOTERIDOL
     Indication: Magnetic resonance imaging
     Dosage: 20 ML, SINGLE
     Dates: start: 20251202, end: 20251202
  2. BYSIMIN [Concomitant]
     Indication: Product used for unknown indication
     Dosage: 1 ML

REACTIONS (1)
  - Adverse reaction [Recovering/Resolving]

NARRATIVE: CASE EVENT DATE: 20251202
